FAERS Safety Report 9713416 (Version 2)
Quarter: 2013Q4

REPORT INFORMATION
  Report Type: Spontaneous
  Country: AT (occurrence: AT)
  Receive Date: 20131126
  Receipt Date: 20131126
  Transmission Date: 20140711
  Serious: Yes (Other)
  Sender: FDA-Public Use
  Company Number: AT-009507513-1311AUT007632

PATIENT
  Age: 10 Year
  Sex: Female
  Weight: 39 kg

DRUGS (6)
  1. SINGULAIR [Suspect]
     Indication: COUGH
     Dosage: 5 MG, QD
     Route: 048
     Dates: start: 201309, end: 20131014
  2. SINGULAIR [Suspect]
     Indication: RESPIRATORY DISORDER
  3. FLIXONASE [Concomitant]
     Indication: COUGH
     Dosage: 1 DF, QD
     Route: 045
     Dates: start: 20130913, end: 20131014
  4. FLIXONASE [Concomitant]
     Indication: RHINITIS
     Dosage: 1 DF, QD
     Route: 045
     Dates: start: 20130830, end: 20130910
  5. FLIXONASE [Concomitant]
     Indication: RHINITIS ALLERGIC
  6. SULTANOL [Concomitant]
     Indication: COUGH

REACTIONS (3)
  - Melaena [Recovered/Resolved]
  - Gastritis erosive [Recovered/Resolved]
  - Abdominal pain [Recovered/Resolved]
